FAERS Safety Report 15676050 (Version 4)
Quarter: 2019Q3

REPORT INFORMATION
  Report Type: Spontaneous
  Country: US (occurrence: US)
  Receive Date: 20181130
  Receipt Date: 20190820
  Transmission Date: 20191004
  Serious: Yes (Other)
  Sender: FDA-Public Use
  Company Number: US-SAKK-2018SA325751AA

PATIENT
  Age: 58 Year
  Sex: Female

DRUGS (3)
  1. KEVZARA [Suspect]
     Active Substance: SARILUMAB
     Dosage: 200 MG, QOW
     Route: 058
     Dates: start: 201811
  2. RANITIDINE. [Concomitant]
     Active Substance: RANITIDINE
  3. KEVZARA [Suspect]
     Active Substance: SARILUMAB
     Dosage: 200 MG, QOW
     Route: 058
     Dates: start: 20181102

REACTIONS (7)
  - Nausea [Recovered/Resolved]
  - Pain [Unknown]
  - Cough [Unknown]
  - Rheumatoid arthritis [Recovered/Resolved]
  - Oropharyngeal pain [Unknown]
  - Sciatica [Unknown]
  - Malaise [Unknown]

NARRATIVE: CASE EVENT DATE: 2018
